FAERS Safety Report 18698840 (Version 1)
Quarter: 2021Q1

REPORT INFORMATION
  Report Type: Spontaneous
  Country: FR (occurrence: FR)
  Receive Date: 20210105
  Receipt Date: 20210105
  Transmission Date: 20210419
  Serious: Yes (Hospitalization, Other)
  Sender: FDA-Public Use
  Company Number: FR-AUROBINDO-AUR-APL-2020-064165

PATIENT
  Age: 35 Year
  Sex: Female
  Weight: 67 kg

DRUGS (2)
  1. CEFTRIAXONE. [Suspect]
     Active Substance: CEFTRIAXONE
     Indication: PYELONEPHRITIS ACUTE
     Dosage: 1 GRAM, ONCE A DAY
     Route: 030
     Dates: start: 20200923, end: 20200925
  2. CEFIXIME. [Suspect]
     Active Substance: CEFIXIME
     Indication: PYELONEPHRITIS ACUTE
     Dosage: UNK
     Route: 048
     Dates: start: 20200915, end: 20200922

REACTIONS (2)
  - Diarrhoea [Recovered/Resolved]
  - Clostridium difficile infection [Recovered/Resolved]

NARRATIVE: CASE EVENT DATE: 20200925
